FAERS Safety Report 21025134 (Version 1)
Quarter: 2022Q2

REPORT INFORMATION
  Report Type: Spontaneous
  Country: IN (occurrence: IN)
  Receive Date: 20220630
  Receipt Date: 20220630
  Transmission Date: 20220721
  Serious: Yes (Hospitalization)
  Sender: FDA-Public Use
  Company Number: IN-Axellia-004366

PATIENT
  Age: 50 Year
  Sex: Male

DRUGS (3)
  1. COLISTIMETHATE SODIUM [Suspect]
     Active Substance: COLISTIMETHATE SODIUM
     Indication: Septic shock
     Dosage: 1 MILLION UNITS (MU) THRICE DAILY
     Route: 042
  2. MEROPENEM [Concomitant]
     Active Substance: MEROPENEM
     Indication: Septic shock
  3. LINEZOLID [Concomitant]
     Active Substance: LINEZOLID
     Indication: Septic shock

REACTIONS (2)
  - Bartter^s syndrome [Recovered/Resolved]
  - Tachyarrhythmia [Unknown]
